FAERS Safety Report 25548392 (Version 3)
Quarter: 2025Q3

REPORT INFORMATION
  Report Type: Spontaneous
  Country: EU (occurrence: EU)
  Receive Date: 20250714
  Receipt Date: 20250909
  Transmission Date: 20251020
  Serious: Yes (Other)
  Sender: TEVA
  Company Number: EU-TEVA-VS-3350281

PATIENT
  Age: 74 Year
  Sex: Male

DRUGS (5)
  1. ZOLPIDEM [Suspect]
     Active Substance: ZOLPIDEM TARTRATE
     Indication: Initial insomnia
     Route: 065
     Dates: start: 2023
  2. ZOLPIDEM [Suspect]
     Active Substance: ZOLPIDEM TARTRATE
     Indication: Initial insomnia
     Route: 065
  3. MELATONIN [Suspect]
     Active Substance: MELATONIN
     Indication: Initial insomnia
     Route: 065
  4. Ferbisol [Concomitant]
     Indication: Product used for unknown indication
  5. TRAZODONE HYDROCHLORIDE [Suspect]
     Active Substance: TRAZODONE HYDROCHLORIDE
     Indication: Depression
     Route: 065

REACTIONS (8)
  - Chronic obstructive pulmonary disease [Unknown]
  - Somnolence [Unknown]
  - Intentional product misuse [Unknown]
  - Sedation [Unknown]
  - Depression [Unknown]
  - Drug ineffective [Unknown]
  - Contraindication to medical treatment [Unknown]
  - Contraindicated product administered [Unknown]

NARRATIVE: CASE EVENT DATE: 20250101
